FAERS Safety Report 7466217-7 (Version None)
Quarter: 2011Q2

REPORT INFORMATION
  Report Type: 
  Country: None (occurrence: None)
  Receive Date: 20110509
  Receipt Date: 20110505
  Transmission Date: 20111010
  Serious: Yes (Hospitalization)
  Sender: FDA-Public Use
  Company Number: HK-SANOFI-AVENTIS-2011SA026265

PATIENT
  Age: 44 Year
  Sex: Male
  Weight: 60.5 kg

DRUGS (3)
  1. CISPLATIN [Suspect]
     Indication: NASOPHARYNGEAL CANCER
     Route: 042
  2. FLUOROURACIL [Suspect]
     Indication: NASOPHARYNGEAL CANCER
     Route: 042
  3. DOCETAXEL [Suspect]
     Indication: NASOPHARYNGEAL CANCER
     Route: 042

REACTIONS (1)
  - HYPONATRAEMIA [None]
